FAERS Safety Report 6120854-0 (Version None)
Quarter: 2009Q1

REPORT INFORMATION
  Report Type: 
  Country: None (occurrence: None)
  Receive Date: 20090317
  Receipt Date: 20090309
  Transmission Date: 20090719
  Serious: Yes (Hospitalization)
  Sender: FDA-Public Use
  Company Number: US-ASTRAZENECA-2009UW06097

PATIENT
  Sex: Male

DRUGS (2)
  1. NEXIUM [Suspect]
     Route: 048
     Dates: start: 20080118
  2. TOPROL-XL [Suspect]
     Route: 048
     Dates: start: 20080118

REACTIONS (4)
  - CARDIAC DISORDER [None]
  - HEPATIC STEATOSIS [None]
  - MYOCARDIAL INFARCTION [None]
  - STENT PLACEMENT [None]
